FAERS Safety Report 24311901 (Version 1)
Quarter: 2024Q3

REPORT INFORMATION
  Report Type: Spontaneous
  Country: US (occurrence: US)
  Receive Date: 20240912
  Receipt Date: 20240912
  Transmission Date: 20241016
  Serious: No
  Sender: ASTELLAS
  Company Number: US-ASTELLAS-2024-AER-004867

PATIENT
  Age: 80 Year
  Sex: Male

DRUGS (2)
  1. XTANDI [Suspect]
     Active Substance: ENZALUTAMIDE
     Indication: Prostate cancer
     Route: 048
  2. ELIQUIS [Interacting]
     Active Substance: APIXABAN
     Indication: Product used for unknown indication
     Dosage: UNKNOWN ROUTE, DOSE, AND FREQUENCY.
     Route: 065

REACTIONS (1)
  - Drug interaction [Unknown]
